FAERS Safety Report 8097945-0 (Version None)
Quarter: 2012Q1

REPORT INFORMATION
  Report Type: 
  Country: None (occurrence: None)
  Receive Date: 20120128
  Receipt Date: 20110721
  Transmission Date: 20120608
  Serious: No
  Sender: FDA-Public Use
  Company Number: US-ABBOTT-11P-163-0840942-00

PATIENT
  Sex: Female
  Weight: 82.628 kg

DRUGS (10)
  1. HUMIRA [Suspect]
     Route: 058
     Dates: start: 20110401
  2. HUMIRA [Suspect]
     Indication: CROHN'S DISEASE
     Route: 058
     Dates: start: 20110301, end: 20110301
  3. HUMIRA [Suspect]
     Route: 058
     Dates: start: 20110301, end: 20110301
  4. EXCEDRIN (MIGRAINE) [Concomitant]
     Indication: MIGRAINE
     Dosage: BID PRN
     Route: 048
  5. AMITRIPTYLINE HCL [Concomitant]
     Indication: INSOMNIA
  6. ENTOCORT EC [Concomitant]
     Indication: CROHN'S DISEASE
     Route: 048
  7. AMITRIPTYLINE HCL [Concomitant]
     Indication: DEPRESSION
  8. AMITRIPTYLINE HCL [Concomitant]
     Indication: STRESS
     Route: 048
     Dates: start: 20110101
  9. AMITRIPTYLINE HCL [Concomitant]
     Indication: ANXIETY
  10. AMITRIPTYLINE HCL [Concomitant]
     Indication: ABDOMINAL RIGIDITY

REACTIONS (7)
  - SOMNOLENCE [None]
  - STRESS [None]
  - ABDOMINAL PAIN UPPER [None]
  - DEPRESSION [None]
  - DEVICE MALFUNCTION [None]
  - ANXIETY [None]
  - CROHN'S DISEASE [None]
